FAERS Safety Report 9295407 (Version 3)
Quarter: 2014Q1

REPORT INFORMATION
  Report Type: Spontaneous
  Country: US (occurrence: US)
  Receive Date: 20130517
  Receipt Date: 20140116
  Transmission Date: 20141002
  Serious: Yes (Hospitalization, Other)
  Sender: FDA-Public Use
  Company Number: US-AMGEN-USASP2013034751

PATIENT
  Age: 71 Year
  Sex: Male
  Weight: 82.99 kg

DRUGS (2)
  1. ENBREL [Suspect]
     Indication: PSORIASIS
     Dosage: 50 MG, 2 TIMES/WK
     Route: 058
     Dates: start: 20050808
  2. ENBREL [Suspect]
     Indication: PSORIATIC ARTHROPATHY

REACTIONS (14)
  - Spinal fusion surgery [Recovered/Resolved]
  - Hyperhidrosis [Recovered/Resolved]
  - Hypopnoea [Recovered/Resolved]
  - Glucose tolerance impaired [Not Recovered/Not Resolved]
  - Mycobacterium tuberculosis complex test positive [Not Recovered/Not Resolved]
  - Blood pressure increased [Recovered/Resolved]
  - Lymphadenopathy [Not Recovered/Not Resolved]
  - Chest pain [Recovered/Resolved]
  - Dengue fever [Recovered/Resolved]
  - Arthralgia [Not Recovered/Not Resolved]
  - Swelling face [Not Recovered/Not Resolved]
  - Malaise [Not Recovered/Not Resolved]
  - Lethargy [Not Recovered/Not Resolved]
  - Psoriasis [Not Recovered/Not Resolved]
